FAERS Safety Report 15360990 (Version 4)
Quarter: 2022Q1

REPORT INFORMATION
  Report Type: Spontaneous
  Country: US (occurrence: US)
  Receive Date: 20180907
  Receipt Date: 20220330
  Transmission Date: 20220424
  Serious: Yes (Other)
  Sender: FDA-Public Use
  Company Number: US-SA-2018SA250983

PATIENT
  Age: 68 Year
  Sex: Female

DRUGS (32)
  1. TERIFLUNOMIDE [Suspect]
     Active Substance: TERIFLUNOMIDE
     Indication: Multiple sclerosis
     Dosage: 14 MG, QD
     Route: 048
     Dates: start: 20180730
  2. TERIFLUNOMIDE [Suspect]
     Active Substance: TERIFLUNOMIDE
     Dosage: 14 MG, QD
     Route: 048
  3. TERIFLUNOMIDE [Suspect]
     Active Substance: TERIFLUNOMIDE
     Dosage: 14 MG, QD
     Route: 048
     Dates: start: 20180801
  4. MYRBETRIQ [Concomitant]
     Active Substance: MIRABEGRON
  5. ZINC [Concomitant]
     Active Substance: ZINC
  6. GRALISE [Concomitant]
     Active Substance: GABAPENTIN
  7. CYMBALTA [Concomitant]
     Active Substance: DULOXETINE HYDROCHLORIDE
  8. LORATADINE [Concomitant]
     Active Substance: LORATADINE
  9. NORVASC [Concomitant]
     Active Substance: AMLODIPINE BESYLATE
  10. SYNTHROID [Concomitant]
     Active Substance: LEVOTHYROXINE SODIUM
  11. VALTREX [Concomitant]
     Active Substance: VALACYCLOVIR HYDROCHLORIDE
  12. NEXIUM 24HR [Concomitant]
     Active Substance: ESOMEPRAZOLE MAGNESIUM
  13. ESTRADIOL [Concomitant]
     Active Substance: ESTRADIOL
  14. POTASSIUM CHLORIDE [Concomitant]
     Active Substance: POTASSIUM CHLORIDE
  15. MOBIC [Concomitant]
     Active Substance: MELOXICAM
  16. TAMSULOSIN HYDROCHLORIDE [Concomitant]
     Active Substance: TAMSULOSIN HYDROCHLORIDE
  17. PROZAC [Concomitant]
     Active Substance: FLUOXETINE HYDROCHLORIDE
  18. BACLOFEN [Concomitant]
     Active Substance: BACLOFEN
  19. TRAZODONE [Concomitant]
     Active Substance: TRAZODONE HYDROCHLORIDE
  20. CRANBERRY PLUS [Concomitant]
  21. HYDROCHLOROTHIAZIDE [Concomitant]
     Active Substance: HYDROCHLOROTHIAZIDE
  22. FUROSEMIDE [Concomitant]
     Active Substance: FUROSEMIDE
  23. BIOTIN [Concomitant]
     Active Substance: BIOTIN
  24. ADIPEX-P [Concomitant]
     Active Substance: PHENTERMINE HYDROCHLORIDE
  25. MAGNESIUM [Concomitant]
     Active Substance: MAGNESIUM
  26. VITAMIN D2 [Concomitant]
     Active Substance: ERGOCALCIFEROL
  27. NUVIGIL [Concomitant]
     Active Substance: ARMODAFINIL
  28. TOPROL XL [Concomitant]
     Active Substance: METOPROLOL SUCCINATE
  29. HORIZANT [Concomitant]
     Active Substance: GABAPENTIN ENACARBIL
  30. PROGESTERONE [Concomitant]
     Active Substance: PROGESTERONE
  31. CRANBERRY + VITAMIN C [ASCORBIC ACID;VACCINIUM MACROCARPON] [Concomitant]
  32. MAGNESIUM L-THREONATE [Concomitant]

REACTIONS (35)
  - Somnolence [Not Recovered/Not Resolved]
  - Balance disorder [Not Recovered/Not Resolved]
  - Visual impairment [Recovering/Resolving]
  - Paraesthesia [Not Recovered/Not Resolved]
  - Multiple sclerosis relapse [Unknown]
  - Depression [Unknown]
  - Feeling abnormal [Recovered/Resolved]
  - Diplopia [Unknown]
  - Cough [Not Recovered/Not Resolved]
  - Throat clearing [Not Recovered/Not Resolved]
  - Tonsillolith [Not Recovered/Not Resolved]
  - Onychoclasis [Not Recovered/Not Resolved]
  - Condition aggravated [Not Recovered/Not Resolved]
  - Blood folate decreased [Not Recovered/Not Resolved]
  - Red blood cell count decreased [Not Recovered/Not Resolved]
  - Mean cell volume increased [Not Recovered/Not Resolved]
  - Speech disorder [Recovering/Resolving]
  - Haemoglobin decreased [Not Recovered/Not Resolved]
  - Insomnia [Recovering/Resolving]
  - Pain [Recovered/Resolved]
  - Fall [Not Recovered/Not Resolved]
  - Feeling abnormal [Recovered/Resolved]
  - Pyrexia [Recovered/Resolved]
  - Dysstasia [Not Recovered/Not Resolved]
  - Confusional state [Recovered/Resolved]
  - Hypersomnia [Recovering/Resolving]
  - Dry skin [Unknown]
  - Full blood count abnormal [Unknown]
  - Fatigue [Unknown]
  - White blood cell count decreased [Not Recovered/Not Resolved]
  - Lymphocyte count decreased [Not Recovered/Not Resolved]
  - Nausea [Recovered/Resolved]
  - Alopecia [Not Recovered/Not Resolved]
  - Influenza [Recovered/Resolved]
  - Product dose omission issue [Unknown]

NARRATIVE: CASE EVENT DATE: 20180101
